FAERS Safety Report 21670230 (Version 2)
Quarter: 2023Q1

REPORT INFORMATION
  Report Type: Spontaneous
  Country: NL (occurrence: NL)
  Receive Date: 20221201
  Receipt Date: 20230105
  Transmission Date: 20230418
  Serious: Yes (Hospitalization)
  Sender: FDA-Public Use
  Company Number: NL-TEVA-2022-NL-2830931

PATIENT
  Age: 39 Year
  Sex: Male

DRUGS (7)
  1. PREDNISONE [Suspect]
     Active Substance: PREDNISONE
     Indication: Sarcoidosis
     Dosage: DOSAGE: RECEIVED PREDNISONE AT VARIOUS DOSES (5-30MG/DAY) FOR 3 YEARS
     Route: 065
  2. PREDNISONE [Suspect]
     Active Substance: PREDNISONE
     Indication: Pyrexia
     Dosage: 15 MILLIGRAM DAILY; DOSAGE: AT INITIAL PRESENTATION
     Route: 065
  3. PREDNISONE [Suspect]
     Active Substance: PREDNISONE
     Dosage: 25 MILLIGRAM DAILY; DOSAGE: DOSE WAS INCREASED
     Route: 065
  4. PREDNISONE [Suspect]
     Active Substance: PREDNISONE
     Dosage: 60 MILLIGRAM DAILY; DOSAGE: PATIENT HIMSELF ADMINISTERED A NUMBER OF COURSES OF 60MG/DAY
     Route: 065
  5. PREDNISONE [Suspect]
     Active Substance: PREDNISONE
     Dosage: 60 MILLIGRAM DAILY; DOSAGE: PATIENT HIMSELF ADMINISTERED A NUMBER OF COURSES OF 60MG/DAY
     Route: 065
  6. AMPHOTERICIN B [Suspect]
     Active Substance: AMPHOTERICIN B
     Indication: Histoplasmosis
     Dosage: 5 MG/KG DAILY;
     Route: 042
  7. CLINDAMYCIN [Suspect]
     Active Substance: CLINDAMYCIN
     Indication: Actinomycosis
     Dosage: 1800 MILLIGRAM DAILY; DOSAGE: 600MG THRICE DAILY
     Route: 048

REACTIONS (7)
  - Histoplasmosis disseminated [Unknown]
  - Pancytopenia [Unknown]
  - Depressed level of consciousness [Unknown]
  - Multiple organ dysfunction syndrome [Unknown]
  - Haemophagocytic lymphohistiocytosis [Unknown]
  - Drug ineffective [Unknown]
  - Intentional product misuse [Unknown]
